FAERS Safety Report 9330057 (Version 3)
Quarter: 2013Q4

REPORT INFORMATION
  Report Type: Spontaneous
  Country: US (occurrence: US)
  Receive Date: 20130604
  Receipt Date: 20131202
  Transmission Date: 20140711
  Serious: Yes (Hospitalization, Other)
  Sender: FDA-Public Use
  Company Number: US-PFIZER INC-2013168762

PATIENT
  Age: 66 Year
  Sex: Female

DRUGS (10)
  1. LYRICA [Suspect]
     Indication: FIBROMYALGIA
     Dosage: 75 MG, 2X/DAY
  2. XANAX [Concomitant]
  3. CALCIUM [Concomitant]
     Indication: OSTEOPOROSIS
     Dosage: 600 MG, 1X/DAY
  4. CRESTOR [Concomitant]
     Dosage: UNK
  5. PLAVIX [Concomitant]
     Dosage: UNK
  6. NORCO [Concomitant]
     Dosage: UNK
  7. REMERON [Concomitant]
     Dosage: UNK
  8. ACETYLSALICYLIC ACID [Concomitant]
     Dosage: 80 MG, UNK
  9. BYSTOLIC [Concomitant]
     Dosage: UNK
  10. JANUVIA [Concomitant]
     Dosage: UNK

REACTIONS (12)
  - Pneumonia [Recovered/Resolved]
  - Hiatus hernia [Unknown]
  - Phlebitis [Unknown]
  - Gallbladder disorder [Unknown]
  - Splenomegaly [Unknown]
  - Splenic haemorrhage [Unknown]
  - Haemorrhage [Unknown]
  - Pleural effusion [Unknown]
  - Blood triglycerides increased [Unknown]
  - Blood glucose increased [Unknown]
  - Eosinophil count increased [Unknown]
  - Glycosylated haemoglobin increased [Unknown]
